FAERS Safety Report 8400298 (Version 2)
Quarter: 2013Q1

REPORT INFORMATION
  Report Type: Spontaneous
  Country: US (occurrence: US)
  Receive Date: 20120210
  Receipt Date: 20130219
  Transmission Date: 20140127
  Serious: Yes (Other)
  Sender: FDA-Public Use
  Company Number: US-BRISTOL-MYERS SQUIBB COMPANY-16307936

PATIENT
  Sex: Female

DRUGS (1)
  1. ORENCIA [Suspect]
     Indication: RHEUMATOID ARTHRITIS
     Dosage: LAST INFUSION ON 30NOV2011 .ONGNG?ROUTE-IVPB
     Route: 042
     Dates: start: 20111005

REACTIONS (3)
  - Urinary tract infection [Unknown]
  - Bronchitis [Unknown]
  - Rash [Unknown]
